FAERS Safety Report 4607654-5 (Version None)
Quarter: 2005Q1

REPORT INFORMATION
  Report Type: 
  Country: None (occurrence: None)
  Receive Date: 20050310
  Receipt Date: 20050225
  Transmission Date: 20050727
  Serious: Yes (Hospitalization, Other)
  Sender: FDA-Public Use
  Company Number: 2005038017

PATIENT
  Age: 74 Year
  Sex: Male

DRUGS (8)
  1. CELEBREX [Suspect]
     Indication: ARTHRITIS
     Dosage: 200 MG (200 MG, 1 IN 1 D)
     Dates: start: 20030201
  2. CELEBREX [Suspect]
     Indication: PERIARTHRITIS
     Dosage: 200 MG (200 MG, 1 IN 1 D)
     Dates: start: 20030201
  3. AMLODIPINE [Concomitant]
  4. INDAPAMIDE [Concomitant]
  5. ACETYLSALICYLIC ACID SRT [Concomitant]
  6. IRBESARTAN [Concomitant]
  7. PIAS LEDINE (PERSEAE OLEUM, SOYA OIL) [Concomitant]
  8. BISOPROLOL FUMARATE [Concomitant]

REACTIONS (4)
  - ANGINA UNSTABLE [None]
  - ANGIOPLASTY [None]
  - AORTIC VALVE INCOMPETENCE [None]
  - TROPONIN INCREASED [None]
